FAERS Safety Report 24191249 (Version 1)
Quarter: 2024Q3

REPORT INFORMATION
  Report Type: Other
  Country: GB (occurrence: GB)
  Receive Date: 20240808
  Receipt Date: 20240808
  Transmission Date: 20241016
  Serious: Yes (Other)
  Sender: Karo Pharma
  Company Number: GB-Karo Pharma-2160188

PATIENT
  Sex: Female

DRUGS (1)
  1. TERBINAFINE [Suspect]
     Active Substance: TERBINAFINE
     Indication: Product used for unknown indication

REACTIONS (2)
  - Medication error [Unknown]
  - Mouth ulceration [Not Recovered/Not Resolved]
